FAERS Safety Report 15530282 (Version 1)
Quarter: 2018Q4

REPORT INFORMATION
  Report Type: Spontaneous
  Country: FR (occurrence: FR)
  Receive Date: 20181018
  Receipt Date: 20181018
  Transmission Date: 20190205
  Serious: Yes (Other)
  Sender: FDA-Public Use
  Company Number: FR-VERTEX PHARMACEUTICALS-2018-007596

PATIENT
  Age: 26 Year
  Sex: Female
  Weight: 45 kg

DRUGS (13)
  1. SERETIDE [Concomitant]
     Active Substance: FLUTICASONE PROPIONATE\SALMETEROL XINAFOATE
     Dosage: 2 DOSAGE FORM, QD
     Route: 055
  2. UVEDOSE [Concomitant]
     Active Substance: CHOLECALCIFEROL
     Dosage: 100, 000 UI, SOLUTION BUVABLE EN AMPOULE, QD
     Route: 048
  3. TOCO [Concomitant]
     Active Substance: UNSPECIFIED INGREDIENT
     Dosage: 500 MG, CAPSULE MOLLE, BID
     Route: 048
  4. ORKAMBI [Suspect]
     Active Substance: IVACAFTOR\LUMACAFTOR
     Indication: CYSTIC FIBROSIS
     Dosage: 4 DOSAGE FORM, QD
     Route: 048
     Dates: start: 20170608, end: 20180502
  5. AERIUS (DESLORATADINE) [Concomitant]
     Active Substance: DESLORATADINE
     Dosage: 5 MG, QD
     Route: 048
  6. COLOBREATHE [Concomitant]
     Active Substance: COLISTIMETHATE SODIUM
     Dosage: 100 MICROGRAM
     Route: 055
  7. INEXIUM                            /01479302/ [Concomitant]
     Active Substance: ESOMEPRAZOLE MAGNESIUM
     Dosage: 20 MG, QD,  COMPRIM? GASTRO-R?SISTANT
     Route: 048
  8. CACIT                              /00944201/ [Concomitant]
     Active Substance: CALCIUM CARBONATE\CHOLECALCIFEROL
     Dosage: 1000 MG, QD, COMPRIM? EFFERVESCENT
     Route: 048
  9. PULMOZYME [Concomitant]
     Active Substance: DORNASE ALFA
     Dosage: 1 AEROSOL 3 FOIS PAR SEMAINE ET UNE AMPOULE PAR VOIE NASALE PAR JOUR
     Route: 055
  10. COLOBREATHE [Concomitant]
     Active Substance: COLISTIMETHATE SODIUM
     Dosage: 2 DOSAGE FORM, 1 662 500 UI, POUDRE POUR INHALATION EN G?LULE
     Route: 055
  11. VENTOLINE                          /00139501/ [Concomitant]
     Active Substance: ALBUTEROL
     Dosage: 100 MICROGRAM
     Route: 055
  12. CREON [Concomitant]
     Active Substance: PANCRELIPASE AMYLASE\PANCRELIPASE LIPASE\PANCRELIPASE PROTEASE
     Dosage: 6 GEL LE MATIN, 7 G?LULES ? MIDI ET LE SOIR ET 5 G?LULES AUX COLLATIONS
     Route: 048
  13. VITAMIN K [Concomitant]
     Active Substance: PHYTONADIONE
     Dosage: 10 MG, QD, SOLUTION BUVABLE ET INJECTABLE
     Route: 048

REACTIONS (2)
  - Arthralgia [Recovered/Resolved]
  - Back pain [Recovered/Resolved]

NARRATIVE: CASE EVENT DATE: 201707
